FAERS Safety Report 22293806 (Version 2)
Quarter: 2023Q2

REPORT INFORMATION
  Report Type: Report from Study
  Country: US (occurrence: US)
  Receive Date: 20230508
  Receipt Date: 20230616
  Transmission Date: 20230722
  Serious: Yes (Hospitalization)
  Sender: FDA-Public Use
  Company Number: US-GILEAD-2023-0626914

PATIENT
  Age: 12 Year
  Sex: Female

DRUGS (2)
  1. AZTREONAM LYSINE [Suspect]
     Active Substance: AZTREONAM LYSINE
     Indication: Bronchiectasis
     Dosage: 75 MG, TID,FOR 28 DAYS ON AND 28 DAYS OFF
     Route: 065
     Dates: start: 201805
  2. PULMOZYME [Concomitant]
     Active Substance: DORNASE ALFA
     Indication: Bronchiectasis
     Dosage: 1MG VIA NEBULIZER EVERY 24 HOURS
     Dates: start: 202203

REACTIONS (2)
  - Lung disorder [Not Recovered/Not Resolved]
  - Off label use [Unknown]

NARRATIVE: CASE EVENT DATE: 20230503
